FAERS Safety Report 9123608 (Version 1)
Quarter: 2013Q1

REPORT INFORMATION
  Report Type: Spontaneous
  Country: US (occurrence: US)
  Receive Date: 20130227
  Receipt Date: 20130227
  Transmission Date: 20140127
  Serious: Yes (Other)
  Sender: FDA-Public Use
  Company Number: US-GILEAD-2013-0070390

PATIENT
  Sex: Male

DRUGS (3)
  1. LETAIRIS [Suspect]
     Indication: COR PULMONALE CHRONIC
     Dosage: 10 MG, QD
     Route: 048
     Dates: start: 20120104, end: 20130107
  2. VENTAVIS [Concomitant]
  3. ADCIRCA [Concomitant]

REACTIONS (2)
  - Pancytopenia [Unknown]
  - Thrombocytopenia [Unknown]
